FAERS Safety Report 8762084 (Version 2)
Quarter: 2012Q4

REPORT INFORMATION
  Report Type: 
  Country: US (occurrence: US)
  Receive Date: 20120830
  Receipt Date: 20120830
  Transmission Date: 20130627
  Serious: Yes (Hospitalization, Other)
  Sender: FDA-Public Use
  Company Number: US-009507513-1107USA02530

PATIENT

DRUGS (6)
  1. FOSAMAX [Suspect]
     Indication: OSTEOPOROSIS
     Dosage: 70 mg, QW
     Route: 048
     Dates: start: 199808, end: 200907
  2. FOSAMAX [Suspect]
     Dosage: 10 mg, qd
     Route: 048
     Dates: start: 20010712
  3. MK-9278 [Concomitant]
     Dates: start: 1991
  4. CALCIUM [Concomitant]
     Dates: start: 1991
  5. THERAPY UNSPECIFIED [Concomitant]
     Dates: start: 1991
  6. FOSAMAX PLUS D [Suspect]
     Route: 048
     Dates: start: 20070910, end: 200907

REACTIONS (65)
  - Pathological fracture [Unknown]
  - Oral disorder [Unknown]
  - Hypothyroidism [Unknown]
  - Invasive ductal breast carcinoma [Unknown]
  - Tooth disorder [Unknown]
  - Dental caries [Unknown]
  - Impaired healing [Unknown]
  - Abdominal pain upper [Unknown]
  - Pain [Unknown]
  - Nausea [Unknown]
  - Vomiting [Unknown]
  - Diarrhoea [Unknown]
  - Breast mass [Unknown]
  - Cholelithiasis [Unknown]
  - Haemangioma of liver [Unknown]
  - Intervertebral disc protrusion [Unknown]
  - Spinal compression fracture [Unknown]
  - Uterovaginal prolapse [Unknown]
  - Extrasystoles [Unknown]
  - Spinal osteoarthritis [Unknown]
  - Cervical spinal stenosis [Unknown]
  - Hydromyelia [Unknown]
  - Bone disorder [Unknown]
  - Neoplasm malignant [Unknown]
  - Uterine prolapse [Unknown]
  - Fallopian tube disorder [Unknown]
  - Splenic granuloma [Unknown]
  - Diverticulum [Unknown]
  - Ventricular extrasystoles [Unknown]
  - Osteopenia [Unknown]
  - Femur fracture [Unknown]
  - Anaemia [Unknown]
  - Pain in extremity [Unknown]
  - Hypoaesthesia [Unknown]
  - Balance disorder [Unknown]
  - Fall [Unknown]
  - Arthropathy [Unknown]
  - Intervertebral disc protrusion [Unknown]
  - Spinal cord disorder [Unknown]
  - Spinal column stenosis [Unknown]
  - Neuropathy peripheral [Unknown]
  - IIIrd nerve paresis [Recovered/Resolved]
  - Carotid bruit [Unknown]
  - Skin disorder [Unknown]
  - Flank pain [Unknown]
  - Dyspnoea [Unknown]
  - Vitamin B12 deficiency [Unknown]
  - Fatigue [Unknown]
  - Gait disturbance [Unknown]
  - Nail disorder [Unknown]
  - Fracture nonunion [Recovered/Resolved]
  - Lumbar radiculopathy [Unknown]
  - Neuropathy peripheral [Unknown]
  - Exostosis of jaw [Recovered/Resolved]
  - Mouth ulceration [Recovered/Resolved]
  - Oral infection [Recovered/Resolved]
  - Bursitis [Unknown]
  - Open reduction of fracture [Unknown]
  - Internal fixation of fracture [Unknown]
  - Breast operation [Unknown]
  - Radiotherapy to breast [Unknown]
  - Hysterosalpingo-oophorectomy [Unknown]
  - Internal fixation of fracture [Unknown]
  - Ankle operation [Unknown]
  - Bone graft [Recovered/Resolved]
